FAERS Safety Report 5179947-7 (Version None)
Quarter: 2006Q4

REPORT INFORMATION
  Report Type: 
  Country: None (occurrence: None)
  Receive Date: 20061212
  Receipt Date: 20061127
  Transmission Date: 20070319
  Serious: Yes (Other)
  Sender: FDA-Public Use
  Company Number: S06-CAN-05116-01

PATIENT
  Age: 78 Year
  Sex: Female

DRUGS (6)
  1. CELEXA [Suspect]
     Dosage: 10 MG QD PO
     Route: 048
  2. COUMADIN [Suspect]
     Dosage: 11 MG
  3. LANOXIN [Concomitant]
  4. NORVASC [Concomitant]
  5. RYTHMOL [Concomitant]
  6. ZESTRIL [Concomitant]

REACTIONS (2)
  - HAEMATURIA [None]
  - PROTHROMBIN TIME PROLONGED [None]
